FAERS Safety Report 10252525 (Version 2)
Quarter: 2014Q2

REPORT INFORMATION
  Report Type: Spontaneous
  Country: DK (occurrence: DK)
  Receive Date: 20140623
  Receipt Date: 20140630
  Transmission Date: 20141212
  Serious: Yes (Hospitalization)
  Sender: FDA-Public Use
  Company Number: DK-BAYER-2014-089361

PATIENT
  Age: 45 Year
  Sex: Female
  Weight: 70 kg

DRUGS (3)
  1. MIRENA [Suspect]
     Indication: CONTRACEPTION
     Dosage: 20 MCG/24HR, CONT
     Route: 015
     Dates: start: 20140606, end: 20140608
  2. ELTROXIN [Concomitant]
     Indication: HYPOTHYROIDISM
     Dosage: UNK
  3. ELTROXIN [Concomitant]
     Indication: HYPOTHYROIDISM

REACTIONS (10)
  - Nausea [Recovering/Resolving]
  - Dizziness [Recovering/Resolving]
  - Visual impairment [Recovering/Resolving]
  - Vision blurred [Recovering/Resolving]
  - Balance disorder [Recovering/Resolving]
  - Malaise [Recovering/Resolving]
  - Disturbance in attention [Recovering/Resolving]
  - Cold sweat [Recovering/Resolving]
  - Listless [Recovering/Resolving]
  - Vomiting [Recovering/Resolving]
